FAERS Safety Report 7214961-9 (Version None)
Quarter: 2011Q1

REPORT INFORMATION
  Report Type: 
  Country: None (occurrence: None)
  Receive Date: 20110107
  Receipt Date: 20100607
  Transmission Date: 20110831
  Serious: No
  Sender: FDA-Public Use
  Company Number: A0864027A

PATIENT

DRUGS (1)
  1. LOVAZA [Suspect]
     Dosage: 4G UNKNOWN
     Route: 048

REACTIONS (1)
  - PALPITATIONS [None]
